FAERS Safety Report 17526752 (Version 1)
Quarter: 2020Q1

REPORT INFORMATION
  Report Type: Spontaneous
  Country: US (occurrence: US)
  Receive Date: 20200311
  Receipt Date: 20200311
  Transmission Date: 20200409
  Serious: No
  Sender: FDA-Public Use
  Company Number: None

PATIENT
  Age: 37 Year
  Sex: Female
  Weight: 72.45 kg

DRUGS (5)
  1. QBREXZA [Suspect]
     Active Substance: GLYCOPYRRONIUM TOSYLATE
     Indication: HYPERHIDROSIS
     Dosage: ?          QUANTITY:1 30;?
     Route: 061
     Dates: start: 20200214, end: 20200228
  2. DAILY WOMENS VITAMINS [Concomitant]
  3. LIOTHYRONINE [Concomitant]
     Active Substance: LIOTHYRONINE
  4. LEVIOTHYROXINE [Concomitant]
  5. METFORMIN [Concomitant]
     Active Substance: METFORMIN HYDROCHLORIDE

REACTIONS (10)
  - Dysuria [None]
  - Dry mouth [None]
  - Dry skin [None]
  - Dry throat [None]
  - Constipation [None]
  - Oropharyngeal pain [None]
  - Nasal dryness [None]
  - Eye irritation [None]
  - Throat irritation [None]
  - Dry eye [None]
